FAERS Safety Report 8164326-0 (Version None)
Quarter: 2012Q1

REPORT INFORMATION
  Report Type: 
  Country: None (occurrence: None)
  Receive Date: 20120224
  Receipt Date: 20120220
  Transmission Date: 20120608
  Serious: Yes (Other)
  Sender: FDA-Public Use
  Company Number: IL-AMGEN-ISRSP2012010889

PATIENT
  Age: 79 Year
  Sex: Male
  Weight: 72 kg

DRUGS (2)
  1. ARANESP [Suspect]
     Indication: MYELODYSPLASTIC SYNDROME
     Dosage: 21 MUG, QD
     Route: 058
     Dates: start: 20111115, end: 20120116
  2. SIMVASTATIN [Concomitant]
     Dosage: UNK UNK, QD

REACTIONS (1)
  - NEUROGENIC BLADDER [None]
